FAERS Safety Report 5310370-8 (Version None)
Quarter: 2007Q2

REPORT INFORMATION
  Report Type: 
  Country: None (occurrence: None)
  Receive Date: 20070427
  Receipt Date: 20070417
  Transmission Date: 20071010
  Serious: Yes (Other)
  Sender: FDA-Public Use
  Company Number: US-PFIZER INC-2007016824

PATIENT
  Sex: Female
  Weight: 59 kg

DRUGS (3)
  1. LYRICA [Suspect]
     Indication: PARTIAL SEIZURES
  2. KEPPRA [Concomitant]
  3. PHENOBARBITAL TAB [Concomitant]

REACTIONS (4)
  - BLINDNESS [None]
  - DIZZINESS [None]
  - FALL [None]
  - INJURY [None]
